FAERS Safety Report 9252159 (Version 1)
Quarter: 2013Q2

REPORT INFORMATION
  Report Type: Spontaneous
  Country: MX (occurrence: MX)
  Receive Date: 20130424
  Receipt Date: 20130424
  Transmission Date: 20140414
  Serious: Yes (Death, Life-Threatening, Hospitalization, Other)
  Sender: FDA-Public Use
  Company Number: MX-UCBSA-084019

PATIENT
  Age: 14 Year
  Sex: Male
  Weight: 43 kg

DRUGS (6)
  1. VIMPAT [Suspect]
     Indication: EPILEPSY
     Route: 048
     Dates: start: 20130121, end: 20130123
  2. VIMPAT [Suspect]
     Indication: EPILEPSY
     Route: 048
     Dates: start: 20130107, end: 20130120
  3. KEPPRA [Concomitant]
     Indication: EPILEPSY
     Route: 048
     Dates: start: 2011, end: 20130124
  4. VALPROATE [Concomitant]
     Indication: EPILEPSY
     Route: 048
     Dates: start: 2010, end: 20130124
  5. TOPIRAMATE [Concomitant]
     Indication: EPILEPSY
     Route: 048
     Dates: start: 2011, end: 20130124
  6. LAMOTRIGINE [Concomitant]
     Indication: EPILEPSY
     Route: 048
     Dates: start: 2011, end: 20130124

REACTIONS (5)
  - Acute respiratory distress syndrome [Fatal]
  - Pneumonia [Fatal]
  - Multi-organ failure [Fatal]
  - Septic shock [Fatal]
  - Cardio-respiratory arrest [Fatal]
